FAERS Safety Report 4810202-8 (Version None)
Quarter: 2005Q4

REPORT INFORMATION
  Report Type: 
  Country: None (occurrence: None)
  Receive Date: 20051026
  Receipt Date: 20050921
  Transmission Date: 20060501
  Serious: Yes (Life-Threatening, Hospitalization, Disabling)
  Sender: FDA-Public Use
  Company Number: GB-MERCK-0509GBR00149

PATIENT
  Age: 66 Year
  Sex: Male

DRUGS (2)
  1. VIOXX [Suspect]
     Indication: MONARTHRITIS
     Route: 048
     Dates: start: 20031023, end: 20040101
  2. ACETAMINOPHEN [Concomitant]
     Route: 065

REACTIONS (3)
  - BLINDNESS UNILATERAL [None]
  - CEREBRAL HAEMORRHAGE [None]
  - HEADACHE [None]
